FAERS Safety Report 8916320 (Version 1)
Quarter: 2012Q4

REPORT INFORMATION
  Report Type: Report from Study
  Country: US (occurrence: US)
  Receive Date: 20121120
  Receipt Date: 20121120
  Transmission Date: 20130627
  Serious: Yes (Hospitalization)
  Sender: FDA-Public Use
  Company Number: US-TEVA-370813USA

PATIENT
  Age: 21 Year
  Sex: Female
  Weight: 67.1 kg

DRUGS (11)
  1. TRISENOX [Suspect]
     Indication: ACUTE PROMYELOCYTIC LEUKAEMIA
     Dates: end: 20120901
  2. CYTARABINE [Suspect]
     Indication: ACUTE PROMYELOCYTIC LEUKAEMIA
     Dates: start: 20120523, end: 20121009
  3. MITOXANTRONE [Suspect]
     Indication: ACUTE PROMYELOCYTIC LEUKAEMIA
     Dates: start: 20120523, end: 20121012
  4. TRETINOIN [Suspect]
     Indication: ACUTE PROMYELOCYTIC LEUKAEMIA
     Dates: start: 20120523, end: 20121022
  5. ACETAMINOPHEN [Concomitant]
     Route: 048
  6. ACETAMINOPHEN W/HYDROCODONE [Concomitant]
     Dosage: 5/325
  7. ONDANSETRON [Concomitant]
  8. OXYCODONE [Concomitant]
     Route: 048
  9. TRIMETHOPRIM-SULFAMETHOXAZOLE [Concomitant]
  10. ZANTAC [Concomitant]
  11. CEFTRIAXONE [Concomitant]

REACTIONS (1)
  - Febrile neutropenia [Recovered/Resolved]
